FAERS Safety Report 8306251-8 (Version None)
Quarter: 2012Q2

REPORT INFORMATION
  Report Type: 
  Country: None (occurrence: None)
  Receive Date: 20120423
  Receipt Date: 20120417
  Transmission Date: 20120825
  Serious: Yes (Other)
  Sender: FDA-Public Use
  Company Number: US-PFIZER INC-2012091763

PATIENT
  Sex: Female
  Weight: 78.005 kg

DRUGS (14)
  1. CARTIA XT [Concomitant]
     Dosage: 240MG
  2. NORTRIPTYLINE [Concomitant]
     Dosage: 10 MG, UNK
  3. POTASSIUM CHLORIDE [Concomitant]
     Dosage: UNK
  4. TIMOLOL [Concomitant]
     Indication: GLAUCOMA
     Dosage: UNK
  5. LATANOPROST [Suspect]
     Indication: GLAUCOMA
     Dosage: ONE DROP IN BOTH THE EYES, 1X/DAY
     Route: 047
  6. FUROSEMIDE [Concomitant]
     Dosage: 20 MG, 1X/DAY
  7. PRILOSEC [Concomitant]
     Dosage: UNK
  8. TYLENOL W/ CODEINE NO. 3 [Concomitant]
     Dosage: UNK, AS NEEDED
  9. XANAX [Concomitant]
     Indication: MUSCLE DISORDER
     Dosage: 0.5 MG, 4X/DAY
  10. ENALAPRIL [Concomitant]
     Dosage: 20 MG
  11. ACETYLSALICYLIC ACID [Concomitant]
     Dosage: UNK
  12. XALATAN [Suspect]
     Indication: GLAUCOMA
     Dosage: ONE DROP IN BOTH EYES, ONCE DAILY
     Route: 047
  13. LATANOPROST [Suspect]
     Dosage: UNK
  14. CELEXA [Concomitant]
     Dosage: UNK

REACTIONS (3)
  - DRUG EFFECT DECREASED [None]
  - DRUG INEFFECTIVE [None]
  - INTRAOCULAR PRESSURE TEST ABNORMAL [None]
